FAERS Safety Report 7741387-1 (Version None)
Quarter: 2011Q3

REPORT INFORMATION
  Report Type: 
  Country: None (occurrence: None)
  Receive Date: 20110909
  Receipt Date: 20110908
  Transmission Date: 20111222
  Serious: Yes (Death, Other)
  Sender: FDA-Public Use
  Company Number: PHHY2009NL67007

PATIENT
  Sex: Female
  Weight: 70 kg

DRUGS (9)
  1. LISINOPRIL [Concomitant]
     Dosage: 10 MG, UNK
     Dates: start: 20060929, end: 20081204
  2. NIFEDIPINE [Concomitant]
     Dosage: 20 MG, UNK
     Dates: start: 20060912, end: 20081204
  3. SANDOSTATIN LAR [Suspect]
     Indication: CARCINOID SYNDROME
     Dosage: 20 MG
     Route: 058
     Dates: start: 20060401
  4. SANDOSTATIN LAR [Suspect]
     Dosage: 30 MG
     Dates: start: 20060601
  5. ASCAL [Concomitant]
     Dosage: 80 MG, UNK
     Dates: start: 20061110
  6. LOPERAMIDE HCL [Concomitant]
  7. SANDOSTATIN LAR [Suspect]
     Dosage: 40 MG
     Dates: start: 20081201
  8. LISINOPRIL [Concomitant]
     Dosage: 5 MG, UNK
     Dates: start: 20060822
  9. SANDOSTATIN LAR [Suspect]
     Dosage: 80 MG
     Dates: start: 20090325

REACTIONS (5)
  - INCORRECT ROUTE OF DRUG ADMINISTRATION [None]
  - LOSS OF CONSCIOUSNESS [None]
  - GENERAL PHYSICAL HEALTH DETERIORATION [None]
  - FALL [None]
  - NEOPLASM MALIGNANT [None]
